FAERS Safety Report 9835003 (Version 2)
Quarter: 2014Q1

REPORT INFORMATION
  Report Type: Spontaneous
  Country: US (occurrence: US)
  Receive Date: 20140122
  Receipt Date: 20140214
  Transmission Date: 20141002
  Serious: Yes (Death)
  Sender: FDA-Public Use
  Company Number: US-PFIZER INC-2014018709

PATIENT
  Age: 53 Year
  Sex: Female

DRUGS (1)
  1. XALKORI [Suspect]
     Indication: OVARIAN CANCER
     Dosage: 250 MG, UNK
     Dates: start: 20131114

REACTIONS (3)
  - Disease progression [Fatal]
  - Ovarian cancer [Fatal]
  - Off label use [Unknown]
